APPROVED DRUG PRODUCT: REDEMPLO
Active Ingredient: PLOZASIRAN SODIUM
Strength: EQ 25MG BASE/0.5ML (EQ 25MG BASE/0.5ML)
Dosage Form/Route: SOLUTION;SUBCUTANEOUS
Application: N219947 | Product #001
Applicant: ARROWHEAD PHARMACEUTICALS INC
Approved: Nov 18, 2025 | RLD: Yes | RS: Yes | Type: RX

PATENTS:
Patent 12365899 | Expires: Sep 10, 2038
Patent 11214801 | Expires: Sep 10, 2038
Patent 10597657 | Expires: Sep 10, 2038
Patent 10294474 | Expires: Mar 7, 2037
Patent 11174481 | Expires: Mar 7, 2037